FAERS Safety Report 7259862 (Version 2)
Quarter: 2014Q1

REPORT INFORMATION
  Report Type: Spontaneous
  Country: IN (occurrence: IN)
  Receive Date: 20100128
  Receipt Date: 20140327
  Transmission Date: 20141002
  Serious: Yes (Other)
  Sender: FDA-Public Use
  Company Number: IN-PFIZER INC-2010007971

PATIENT
  Age: 3 Month
  Sex: Male

DRUGS (4)
  1. ENALAPRIL MALEATE [Suspect]
     Indication: CARDIAC FAILURE CONGESTIVE
     Dosage: 0.3 MG/KG, 1X/DAY
  2. SPIRONOLACTONE [Suspect]
     Indication: CARDIAC FAILURE CONGESTIVE
     Dosage: 1 MG/KG, 1X/DAY
  3. FUROSEMIDE [Suspect]
     Indication: CARDIAC FAILURE CONGESTIVE
     Dosage: 1 MG/KG, 1X/DAY
  4. DIGOXIN [Suspect]
     Indication: CARDIAC FAILURE CONGESTIVE
     Dosage: 10 UG/KG, 1X/DAY

REACTIONS (3)
  - Renal failure [Recovered/Resolved]
  - Toxicity to various agents [Recovered/Resolved]
  - Atrioventricular dissociation [Recovered/Resolved]
